FAERS Safety Report 4452588-2 (Version None)
Quarter: 2004Q3

REPORT INFORMATION
  Report Type: 
  Country: None (occurrence: None)
  Receive Date: 20040913
  Receipt Date: 20040728
  Transmission Date: 20050211
  Serious: No
  Sender: FDA-Public Use
  Company Number: 2004-BP-06248BP(0)

PATIENT
  Age: 64 Year
  Sex: Male

DRUGS (6)
  1. SPIRIVA [Suspect]
     Indication: CHRONIC OBSTRUCTIVE AIRWAYS DISEASE
     Dosage: 18 MCG (18 MCG), IH
     Dates: start: 20040723
  2. PULMICORT [Concomitant]
  3. ALBUTEROL [Concomitant]
  4. DIAZIDE (GLICLAZIDE) [Concomitant]
  5. DILTIAZEM [Concomitant]
  6. XANAX [Concomitant]

REACTIONS (1)
  - DYSPNOEA [None]
